FAERS Safety Report 5195564-7 (Version None)
Quarter: 2006Q4

REPORT INFORMATION
  Report Type: 
  Country: None (occurrence: None)
  Receive Date: 20061226
  Receipt Date: 20061226
  Transmission Date: 20070319
  Serious: Yes (Death)
  Sender: FDA-Public Use
  Company Number: None

PATIENT
  Sex: Male
  Weight: 40 kg

DRUGS (7)
  1. VALPROIC ACID [Suspect]
     Indication: EPILEPSY
     Dosage: 400 MG QID PO
     Route: 048
  2. LEVETIRACETAM [Concomitant]
  3. RANITIDINE [Concomitant]
  4. CLONAZEPAM [Concomitant]
  5. EPINEPHRINE [Concomitant]
  6. DOPAMINE HCL [Concomitant]
  7. VASOPRESSIN [Concomitant]

REACTIONS (18)
  - ABDOMINAL DISTENSION [None]
  - ABDOMINAL PAIN [None]
  - ACUTE RESPIRATORY FAILURE [None]
  - BRADYCARDIA [None]
  - CONSTIPATION [None]
  - HYPOTENSION [None]
  - HYPOVOLAEMIA [None]
  - LETHARGY [None]
  - METABOLIC ACIDOSIS [None]
  - MULTI-ORGAN FAILURE [None]
  - NO THERAPEUTIC RESPONSE [None]
  - PANCREATITIS HAEMORRHAGIC [None]
  - RESPIRATORY DISTRESS [None]
  - SEPSIS [None]
  - SOMNOLENCE [None]
  - SYSTEMIC INFLAMMATORY RESPONSE SYNDROME [None]
  - URINE OUTPUT DECREASED [None]
  - VOMITING [None]
